FAERS Safety Report 10380775 (Version 2)
Quarter: 2014Q3

REPORT INFORMATION
  Report Type: Spontaneous
  Country: AU (occurrence: AU)
  Receive Date: 20140813
  Receipt Date: 20140813
  Transmission Date: 20150326
  Serious: Yes (Hospitalization, Other)
  Sender: FDA-Public Use
  Company Number: AU-BAYER-2014-119572

PATIENT
  Age: 52 Year
  Sex: Female
  Weight: 69.84 kg

DRUGS (3)
  1. XARELTO [Suspect]
     Active Substance: RIVAROXABAN
     Indication: DEEP VEIN THROMBOSIS
     Dosage: 30 MG, UNK
     Dates: start: 20140608
  2. YAZ [Suspect]
     Active Substance: DROSPIRENONE\ETHINYL ESTRADIOL
     Indication: CONTRACEPTION
     Dosage: UNK
     Dates: start: 20100820, end: 20140619
  3. XARELTO [Suspect]
     Active Substance: RIVAROXABAN
     Indication: PULMONARY EMBOLISM

REACTIONS (6)
  - Haemoglobin decreased [None]
  - Pulmonary embolism [None]
  - Deep vein thrombosis [None]
  - Fatigue [None]
  - Dyspnoea [None]
  - Uterine haemorrhage [Recovered/Resolved with Sequelae]

NARRATIVE: CASE EVENT DATE: 201405
